FAERS Safety Report 4497611-4 (Version None)
Quarter: 2004Q4

REPORT INFORMATION
  Report Type: 
  Country: None (occurrence: None)
  Receive Date: 20041105
  Receipt Date: 20041022
  Transmission Date: 20050328
  Serious: Yes (Death)
  Sender: FDA-Public Use
  Company Number: US-JNJFOC-20040205284

PATIENT
  Sex: Male
  Weight: 58.51 kg

DRUGS (3)
  1. REMINYL [Suspect]
     Indication: DRUG USE FOR UNKNOWN INDICATION
     Dosage: 5-10MG DAILY
     Route: 049
     Dates: start: 20020101
  2. BETA BLOCKER [Concomitant]
     Route: 049
  3. DIURETIC [Concomitant]
     Route: 049

REACTIONS (1)
  - DEATH [None]
